FAERS Safety Report 4975591-2 (Version None)
Quarter: 2006Q1

REPORT INFORMATION
  Report Type: 
  Country: None (occurrence: None)
  Receive Date: 20060222
  Receipt Date: 20050525
  Transmission Date: 20060701
  Serious: Yes (Other)
  Sender: FDA-Public Use
  Company Number: HQWYE954625MAY05

PATIENT

DRUGS (1)
  1. PROTONIX [Suspect]

REACTIONS (1)
  - ANGIONEUROTIC OEDEMA [None]
